APPROVED DRUG PRODUCT: ALFENTANIL
Active Ingredient: ALFENTANIL HYDROCHLORIDE
Strength: EQ 0.5MG BASE/ML
Dosage Form/Route: INJECTABLE;INJECTION
Application: A075221 | Product #001
Applicant: HOSPIRA INC
Approved: Oct 28, 1999 | RLD: No | RS: No | Type: DISCN